FAERS Safety Report 11912394 (Version 1)
Quarter: 2016Q1

REPORT INFORMATION
  Report Type: Spontaneous
  Country: US (occurrence: US)
  Receive Date: 20160113
  Receipt Date: 20160113
  Transmission Date: 20160526
  Serious: No
  Sender: FDA-Public Use
  Company Number: US-009507513-1601USA003108

PATIENT
  Age: 90 Year
  Sex: Female

DRUGS (1)
  1. BELSOMRA [Suspect]
     Active Substance: SUVOREXANT
     Indication: INSOMNIA
     Dosage: 10 MG (1X) DAILY
     Route: 048

REACTIONS (6)
  - Headache [Unknown]
  - Abnormal dreams [Unknown]
  - Nasopharyngitis [Unknown]
  - Somnolence [Unknown]
  - Dizziness [Unknown]
  - Dry mouth [Unknown]

NARRATIVE: CASE EVENT DATE: 20160104
